FAERS Safety Report 19676343 (Version 2)
Quarter: 2021Q3

REPORT INFORMATION
  Report Type: Spontaneous
  Country: BR (occurrence: BR)
  Receive Date: 20210809
  Receipt Date: 20210813
  Transmission Date: 20211014
  Serious: Yes (Other)
  Sender: FDA-Public Use
  Company Number: BR-EMD SERONO-9256537

PATIENT
  Age: 57 Year
  Sex: Female

DRUGS (10)
  1. COLLAGEN [Concomitant]
     Active Substance: COLLAGEN
     Indication: PRODUCT USED FOR UNKNOWN INDICATION
  2. ADDERA D3 [Concomitant]
     Active Substance: CHOLECALCIFEROL
     Indication: PRODUCT USED FOR UNKNOWN INDICATION
  3. LEVOTHYROXINE SODIUM. [Suspect]
     Active Substance: LEVOTHYROXINE SODIUM
     Dosage: 2 BOXES WITH THE SAME BATCH NUMBER. 150 MCG FOR OVER TEN YEARS, MANUFACTURING DATE: SEP 2020
     Route: 048
  4. PANTOGAR                           /00630501/ [Concomitant]
     Indication: HAIR DISORDER
  5. GLIFAGE [Suspect]
     Active Substance: METFORMIN HYDROCHLORIDE
     Indication: BLOOD GLUCOSE ABNORMAL
     Route: 048
  6. CENTRUM [Concomitant]
     Active Substance: VITAMINS
     Indication: PRODUCT USED FOR UNKNOWN INDICATION
  7. OMEGA 3?6?9                        /01333901/ [Concomitant]
     Active Substance: OMEGA-3 FATTY ACIDS
     Indication: BLOOD CHOLESTEROL ABNORMAL
  8. LEVOTHYROXINE SODIUM. [Suspect]
     Active Substance: LEVOTHYROXINE SODIUM
     Indication: HYPOTHYROIDISM
     Dosage: 2 BOXES WITH THE SAME BATCH NUMBER, MANUFACTURING DATE: JAN 2020
     Route: 048
  9. SYNTHROID [Suspect]
     Active Substance: LEVOTHYROXINE SODIUM
     Indication: HYPOTHYROIDISM
     Dosage: STARTED SYNTHROID AT THE AGE OF 34 YEARS, ALTERNATES WITH LEVOTHYROXINE
  10. LEVOTHYROXINE SODIUM. [Suspect]
     Active Substance: LEVOTHYROXINE SODIUM
     Dosage: MANUFACTURING DATE: APR 2020

REACTIONS (3)
  - Drug ineffective [Not Recovered/Not Resolved]
  - Cyst [Unknown]
  - Counterfeit product administered [Not Recovered/Not Resolved]

NARRATIVE: CASE EVENT DATE: 2021
